FAERS Safety Report 6753737-3 (Version None)
Quarter: 2010Q2

REPORT INFORMATION
  Report Type: 
  Country: None (occurrence: None)
  Receive Date: 20100603
  Receipt Date: 20100528
  Transmission Date: 20101027
  Serious: Yes (Hospitalization)
  Sender: FDA-Public Use
  Company Number: US-GILEAD-2010-0028822

PATIENT
  Sex: Male

DRUGS (12)
  1. LETAIRIS [Suspect]
     Indication: PULMONARY ARTERIAL HYPERTENSION
     Route: 048
     Dates: start: 20100329, end: 20100406
  2. WARFARIN [Concomitant]
  3. TRIAMTERENE AND HYDROCHLOROTHIAZIDE [Concomitant]
  4. DIOVAN [Concomitant]
  5. COREG [Concomitant]
  6. AMLODIPINE [Concomitant]
  7. LIPITOR [Concomitant]
  8. TRICOR [Concomitant]
  9. AVODART [Concomitant]
  10. LEVOTHYROXINE SODIUM [Concomitant]
  11. FOLAST [Concomitant]
  12. KAPIDEX [Concomitant]

REACTIONS (3)
  - AZOTAEMIA [None]
  - DYSPNOEA [None]
  - OEDEMA PERIPHERAL [None]
